FAERS Safety Report 6631047-2 (Version None)
Quarter: 2010Q1

REPORT INFORMATION
  Report Type: 
  Country: None (occurrence: None)
  Receive Date: 20100311
  Receipt Date: 20100303
  Transmission Date: 20100710
  Serious: Yes (Life-Threatening, Other)
  Sender: FDA-Public Use
  Company Number: AT-ABBOTT-10P-009-0629961-00

PATIENT
  Sex: Female
  Weight: 2.3 kg

DRUGS (6)
  1. SEVOFLURANE [Suspect]
     Indication: HERNIA REPAIR
     Dosage: 2.9-6.2 INSP. 2.8-6.3 EXPIR.
     Route: 055
     Dates: start: 20091104, end: 20091104
  2. SEVOFLURANE [Suspect]
  3. PROPOFOL [Concomitant]
     Indication: INDUCTION OF ANAESTHESIA
     Route: 042
  4. FENTANYL [Concomitant]
     Indication: INDUCTION OF ANAESTHESIA
     Route: 042
  5. N2O/O2 [Concomitant]
     Indication: MAINTENANCE OF ANAESTHESIA
     Dosage: 50:50
  6. NAROPIN [Concomitant]
     Indication: DRUG USE FOR UNKNOWN INDICATION
     Dosage: 2 ML (0.2%) SINGLE SHOT

REACTIONS (2)
  - BUNDLE BRANCH BLOCK [None]
  - SINUS BRADYCARDIA [None]
